FAERS Safety Report 17144933 (Version 2)
Quarter: 2020Q1

REPORT INFORMATION
  Report Type: Spontaneous
  Country: IT (occurrence: IT)
  Receive Date: 20191212
  Receipt Date: 20200218
  Transmission Date: 20200409
  Serious: Yes (Other)
  Sender: FDA-Public Use
  Company Number: IT-SAMSUNG BIOEPIS-SB-2019-34231

PATIENT
  Age: 46 Year
  Sex: Female

DRUGS (1)
  1. IMRALDI [Suspect]
     Active Substance: ADALIMUMAB
     Indication: PSORIASIS
     Dosage: UNKNOWN
     Route: 065

REACTIONS (5)
  - Pruritus [Unknown]
  - Paraesthesia [Unknown]
  - Laryngeal oedema [Unknown]
  - Lip oedema [Unknown]
  - Urticaria [Unknown]

NARRATIVE: CASE EVENT DATE: 20190207
